FAERS Safety Report 21608272 (Version 2)
Quarter: 2022Q4

REPORT INFORMATION
  Report Type: Spontaneous
  Country: DE (occurrence: None)
  Receive Date: 20221117
  Receipt Date: 20221118
  Transmission Date: 20230112
  Serious: Yes (Life-Threatening, Other)
  Sender: FDA-Public Use
  Company Number: 2022A379580

PATIENT
  Sex: Female

DRUGS (4)
  1. LYNPARZA [Suspect]
     Active Substance: OLAPARIB
     Indication: Ovarian cancer
     Route: 048
  2. LYNPARZA [Suspect]
     Active Substance: OLAPARIB
     Indication: Ovarian cancer
     Route: 048
  3. PACLITAXEL/CARBOPLATIN [Concomitant]
     Dates: start: 201911, end: 202009
  4. CAELYX+CARBOPLATIN [Concomitant]
     Dates: start: 202108, end: 202201

REACTIONS (3)
  - Anaemia [Recovered/Resolved]
  - Thrombocytopenia [Unknown]
  - Off label use [Unknown]
